FAERS Safety Report 4967207-6 (Version None)
Quarter: 2006Q2

REPORT INFORMATION
  Report Type: 
  Country: None (occurrence: None)
  Receive Date: 20060403
  Receipt Date: 20060321
  Transmission Date: 20061013
  Serious: Yes (Hospitalization, Other)
  Sender: FDA-Public Use
  Company Number: 2006039247

PATIENT
  Sex: Female
  Weight: 136.0791 kg

DRUGS (1)
  1. ZYVOX [Suspect]
     Indication: STAPHYLOCOCCAL INFECTION
     Dosage: 1200 MG (600 MG, Q 12H INTERVAL: EVERY DAY)

REACTIONS (2)
  - LABORATORY TEST ABNORMAL [None]
  - STAPHYLOCOCCAL INFECTION [None]
